FAERS Safety Report 9871095 (Version 2)
Quarter: 2014Q1

REPORT INFORMATION
  Report Type: Report from Study
  Country: ES (occurrence: ES)
  Receive Date: 20140205
  Receipt Date: 20140205
  Transmission Date: 20141002
  Serious: Yes (Hospitalization)
  Sender: FDA-Public Use
  Company Number: PHHO2014ES001182

PATIENT
  Sex: 0

DRUGS (6)
  1. BISOPROLOL [Suspect]
     Indication: TACHYCARDIA
     Dosage: 10 MG, QD
     Route: 048
     Dates: start: 20120101, end: 20140120
  2. MEK162 [Suspect]
     Indication: METASTATIC OCULAR MELANOMA
     Dosage: 30 MG, BID
     Route: 048
     Dates: start: 20131217
  3. AEB071 [Suspect]
     Indication: METASTATIC OCULAR MELANOMA
     Dosage: 350 MG, BID (300 MG BID)
     Route: 048
     Dates: start: 20131217
  4. BROMAZEPAN [Concomitant]
     Indication: ANXIETY
     Dosage: 15 MG, QD
     Route: 048
     Dates: start: 20120101
  5. METOCLOPRAMIDE [Concomitant]
     Indication: VOMITING
     Dosage: 10 MG, BID
     Route: 048
     Dates: start: 20131217
  6. ONDANSETRAN [Concomitant]
     Indication: VOMITING
     Dosage: 4 MG, QD
     Route: 048
     Dates: start: 20131217

REACTIONS (1)
  - Sinus tachycardia [Recovered/Resolved]
